FAERS Safety Report 14162825 (Version 1)
Quarter: 2017Q4

REPORT INFORMATION
  Report Type: Report from Study
  Country: None (occurrence: US)
  Receive Date: 20171106
  Receipt Date: 20171106
  Transmission Date: 20180321
  Serious: Yes (Other)
  Sender: FDA-Public Use
  Company Number: US-ABBVIE-17K-163-2147146-00

PATIENT
  Age: 63 Year
  Sex: Female

DRUGS (2)
  1. HUMIRA [Suspect]
     Active Substance: ADALIMUMAB
     Indication: RHEUMATOID ARTHRITIS
     Route: 058
     Dates: end: 2017
  2. HUMIRA [Suspect]
     Active Substance: ADALIMUMAB
     Route: 058
     Dates: start: 201709

REACTIONS (13)
  - Catheterisation cardiac [Recovered/Resolved]
  - Catheterisation cardiac [Recovered/Resolved]
  - Spinal osteoarthritis [Not Recovered/Not Resolved]
  - Arthralgia [Not Recovered/Not Resolved]
  - Synovial cyst [Recovered/Resolved]
  - Atypical pneumonia [Recovered/Resolved]
  - Trigger finger [Recovered/Resolved]
  - Nephrolithiasis [Recovered/Resolved]
  - Venous operation [Recovered/Resolved]
  - Nasopharyngitis [Unknown]
  - Osteoarthritis [Recovered/Resolved]
  - Carpal tunnel syndrome [Recovered/Resolved]
  - Venous operation [Recovered/Resolved]

NARRATIVE: CASE EVENT DATE: 201103
